FAERS Safety Report 6014873-2 (Version None)
Quarter: 2008Q4

REPORT INFORMATION
  Report Type: 
  Country: None (occurrence: None)
  Receive Date: 20081219
  Receipt Date: 20080820
  Transmission Date: 20090506
  Serious: No
  Sender: FDA-Public Use
  Company Number: US-B.I. PHARMACEUTICALS,INC./RIDGEFIELD-2008-BP-12576BP

PATIENT
  Sex: Male

DRUGS (4)
  1. FLOMAX [Suspect]
     Indication: DYSURIA
     Route: 048
  2. FLOMAX [Suspect]
     Indication: PROSTATOMEGALY
  3. ASPIRIN [Concomitant]
     Dosage: 81MG
  4. SIMVASTATIN [Concomitant]
     Dosage: 20MG

REACTIONS (1)
  - EJACULATION FAILURE [None]
